FAERS Safety Report 9735535 (Version 1)
Quarter: 2013Q4

REPORT INFORMATION
  Report Type: Spontaneous
  Country: US (occurrence: US)
  Receive Date: 20131206
  Receipt Date: 20131206
  Transmission Date: 20140711
  Serious: No
  Sender: FDA-Public Use
  Company Number: US-GILEAD-2009-0023586

PATIENT
  Age: 75 Year
  Sex: Female

DRUGS (8)
  1. LETAIRIS [Suspect]
     Indication: PULMONARY ARTERIAL HYPERTENSION
     Route: 048
     Dates: start: 20090710, end: 20090731
  2. HYDROCHLOROTHIAZIDE [Concomitant]
  3. IPRATROPIUM [Concomitant]
  4. SIMVASTATIN [Concomitant]
  5. LEVOXYL [Concomitant]
  6. PREDNISONE [Concomitant]
  7. POTASSIUM [Concomitant]
  8. PRILOSEC [Concomitant]

REACTIONS (3)
  - Fatigue [Recovered/Resolved]
  - Asthenia [Recovered/Resolved]
  - Malaise [Recovered/Resolved]
